FAERS Safety Report 7190074-X (Version None)
Quarter: 2010Q4

REPORT INFORMATION
  Report Type: 
  Country: None (occurrence: None)
  Receive Date: 20101223
  Receipt Date: 20101220
  Transmission Date: 20110411
  Serious: No
  Sender: FDA-Public Use
  Company Number: US-PFIZER INC-2010176081

PATIENT
  Sex: Female

DRUGS (2)
  1. CALAN [Suspect]
     Indication: SUPRAVENTRICULAR TACHYCARDIA
     Dosage: 120 MG, DAILY
     Route: 048
  2. SYNTHROID [Concomitant]
     Indication: HYPOTHYROIDISM
     Dosage: 0.88 UG, UNK
     Dates: start: 20010101

REACTIONS (4)
  - ALANINE AMINOTRANSFERASE ABNORMAL [None]
  - ASPARTATE AMINOTRANSFERASE ABNORMAL [None]
  - BLOOD BILIRUBIN ABNORMAL [None]
  - IRRITABLE BOWEL SYNDROME [None]
